FAERS Safety Report 11400469 (Version 2)
Quarter: 2015Q3

REPORT INFORMATION
  Report Type: Spontaneous
  Country: US (occurrence: US)
  Receive Date: 20150820
  Receipt Date: 20150825
  Transmission Date: 20151125
  Serious: No
  Sender: FDA-Public Use
  Company Number: US-PFIZER INC-2015275720

PATIENT
  Age: 66 Year
  Sex: Female
  Weight: 118 kg

DRUGS (1)
  1. PREMARIN [Suspect]
     Active Substance: ESTROGENS, CONJUGATED
     Dosage: 0.625 MG, 1X/DAY, FOR 28 DAY CYCLE

REACTIONS (2)
  - Memory impairment [Unknown]
  - Feeling abnormal [Unknown]
